FAERS Safety Report 10478603 (Version 2)
Quarter: 2014Q3

REPORT INFORMATION
  Report Type: Report from Study
  Country: BR (occurrence: BR)
  Receive Date: 20140926
  Receipt Date: 20140926
  Transmission Date: 20150326
  Serious: Yes (Other)
  Sender: FDA-Public Use
  Company Number: BR-ABBVIE-10P-020-0664468-00

PATIENT
  Age: 57 Year
  Sex: Female
  Weight: 47 kg

DRUGS (20)
  1. NIMESULIDE [Suspect]
     Active Substance: NIMESULIDE
     Indication: INFLAMMATION
     Route: 048
  2. DEFLAZACORT [Concomitant]
     Active Substance: DEFLAZACORT
     Indication: INFLAMMATION
  3. MELOXICAM. [Concomitant]
     Active Substance: MELOXICAM
     Indication: INFLAMMATION
  4. LEVOID [Concomitant]
     Active Substance: LEVOTHYROXINE
     Indication: THYROID DISORDER
     Route: 048
     Dates: start: 2004
  5. SYNTHROID [Concomitant]
     Active Substance: LEVOTHYROXINE SODIUM
     Indication: THYROID DISORDER
     Route: 048
  6. CALDE [Concomitant]
     Active Substance: CALCIUM CARBONATE\CHOLECALCIFEROL
     Indication: BONE DISORDER
     Route: 048
     Dates: start: 201408
  7. HUMIRA [Suspect]
     Active Substance: ADALIMUMAB
     Indication: RHEUMATOID ARTHRITIS
     Route: 058
     Dates: start: 2007, end: 20100704
  8. DEFLAZACORT [Concomitant]
     Active Substance: DEFLAZACORT
     Indication: RHEUMATIC DISORDER
     Route: 048
  9. HUMIRA [Suspect]
     Active Substance: ADALIMUMAB
     Route: 058
     Dates: end: 20101020
  10. HARPAGOPHYTUM PROCUMBENS [Concomitant]
     Indication: ARTHRITIS
     Dosage: 20% OF THE TABLET
     Route: 048
     Dates: start: 201408
  11. HARPAGOPHYTUM PROCUMBENS [Concomitant]
     Indication: PROPHYLAXIS
  12. OMEPRAZOLE. [Concomitant]
     Active Substance: OMEPRAZOLE
     Indication: ABDOMINAL PAIN UPPER
     Route: 048
  13. MELOXICAM. [Concomitant]
     Active Substance: MELOXICAM
     Indication: PROPHYLAXIS
  14. HUMIRA [Suspect]
     Active Substance: ADALIMUMAB
     Route: 058
  15. SODIUM CHLORIDE. [Concomitant]
     Active Substance: SODIUM CHLORIDE
     Indication: OSTEOARTHRITIS
     Route: 048
  16. MELOXICAM. [Concomitant]
     Active Substance: MELOXICAM
     Indication: PAIN
     Route: 048
     Dates: start: 2013
  17. ARAVA [Suspect]
     Active Substance: LEFLUNOMIDE
     Indication: RHEUMATOID ARTHRITIS
     Route: 048
  18. RISEDRONATE SODIUM. [Concomitant]
     Active Substance: RISEDRONATE SODIUM
     Indication: OSTEOARTHRITIS
     Route: 048
  19. CALCIUM PHOSPHATE W/COLECALCIFEROL [Concomitant]
     Indication: BONE DISORDER
     Dosage: 400/600 MG
     Route: 048
  20. CALCIUM PHOSPHATE W/COLECALCIFEROL [Concomitant]
     Indication: MINERAL SUPPLEMENTATION

REACTIONS (14)
  - Arthropathy [Recovering/Resolving]
  - Muscle fatigue [Not Recovered/Not Resolved]
  - Nausea [Recovering/Resolving]
  - Blood cholesterol increased [Recovered/Resolved]
  - Knee deformity [Unknown]
  - Joint swelling [Unknown]
  - Joint instability [Unknown]
  - Somnolence [Unknown]
  - Malaise [Recovering/Resolving]
  - Wound [Recovered/Resolved]
  - Asthenia [Not Recovered/Not Resolved]
  - Nasopharyngitis [Recovering/Resolving]
  - Dizziness [Not Recovered/Not Resolved]
  - Arthropathy [Not Recovered/Not Resolved]

NARRATIVE: CASE EVENT DATE: 200912
